FAERS Safety Report 20299778 (Version 2)
Quarter: 2022Q2

REPORT INFORMATION
  Report Type: Spontaneous
  Country: US (occurrence: None)
  Receive Date: 20220105
  Receipt Date: 20220517
  Transmission Date: 20220721
  Serious: Yes (Other)
  Sender: FDA-Public Use
  Company Number: 2021A907426

PATIENT
  Age: 61 Year
  Sex: Female
  Weight: 108.4 kg

DRUGS (59)
  1. NEXIUM [Suspect]
     Active Substance: ESOMEPRAZOLE MAGNESIUM
     Indication: Gastrooesophageal reflux disease
     Route: 048
     Dates: start: 2000, end: 2020
  2. NEXIUM [Suspect]
     Active Substance: ESOMEPRAZOLE MAGNESIUM
     Indication: Gastrooesophageal reflux disease
     Route: 048
     Dates: start: 2000, end: 2019
  3. NEXIUM [Suspect]
     Active Substance: ESOMEPRAZOLE MAGNESIUM
     Indication: Gastrooesophageal reflux disease
     Dosage: GENERIC
     Route: 065
     Dates: start: 2017, end: 2018
  4. PRILOSEC [Suspect]
     Active Substance: OMEPRAZOLE MAGNESIUM
     Indication: Gastrooesophageal reflux disease
     Dosage: GENERIC
     Route: 065
     Dates: start: 2016, end: 2020
  5. PRILOSEC [Suspect]
     Active Substance: OMEPRAZOLE MAGNESIUM
     Indication: Gastrooesophageal reflux disease
     Dosage: GENERIC
     Route: 065
     Dates: start: 2016, end: 2020
  6. PRILOSEC OTC [Suspect]
     Active Substance: OMEPRAZOLE MAGNESIUM
     Indication: Gastrooesophageal reflux disease
     Route: 065
     Dates: start: 2010, end: 2016
  7. PREVACID 24 HR [Suspect]
     Active Substance: LANSOPRAZOLE
     Indication: Gastrooesophageal reflux disease
     Route: 048
     Dates: start: 2000, end: 2020
  8. PREVACID 24 HR [Suspect]
     Active Substance: LANSOPRAZOLE
     Indication: Gastrooesophageal reflux disease
     Route: 048
     Dates: start: 2010, end: 2016
  9. PREVACID 24 HR [Suspect]
     Active Substance: LANSOPRAZOLE
     Indication: Gastrooesophageal reflux disease
     Dosage: GENERIC
     Route: 065
  10. ZEGERID [Suspect]
     Active Substance: OMEPRAZOLE\SODIUM BICARBONATE
     Indication: Gastrooesophageal reflux disease
     Route: 065
     Dates: start: 2013, end: 2018
  11. ZEGERID [Suspect]
     Active Substance: OMEPRAZOLE\SODIUM BICARBONATE
     Indication: Gastrooesophageal reflux disease
     Dosage: GENERIC
     Route: 065
  12. PROTONIX [Suspect]
     Active Substance: PANTOPRAZOLE SODIUM
     Indication: Gastrooesophageal reflux disease
     Route: 065
     Dates: start: 2012, end: 2013
  13. PROTONIX [Suspect]
     Active Substance: PANTOPRAZOLE SODIUM
     Indication: Gastrooesophageal reflux disease
     Dosage: GENERIC
     Route: 065
     Dates: start: 2013
  14. FAMOTIDINE [Concomitant]
     Active Substance: FAMOTIDINE
     Dates: start: 2020
  15. TUMS [Concomitant]
     Active Substance: CALCIUM CARBONATE
     Dosage: AS NEEDED
     Dates: start: 1998, end: 2000
  16. ROLAIDS [Concomitant]
     Active Substance: CALCIUM CARBONATE\MAGNESIUM HYDROXIDE
     Dosage: AS NEEDED
     Dates: start: 1998, end: 2000
  17. DOXEPIN [Concomitant]
     Active Substance: DOXEPIN
     Indication: Sleep apnoea syndrome
     Dates: start: 2019
  18. CARVEDILOL [Concomitant]
     Active Substance: CARVEDILOL
     Indication: Hypertension
     Dates: start: 2018
  19. LOSARTAN [Concomitant]
     Active Substance: LOSARTAN
     Indication: Hypertension
     Dates: start: 2017
  20. EPHEDRA SPP./ZINGIBER OFFICINALE RHIZOME/PAULLINIA CUPANA/SALIX ALBA B [Concomitant]
     Indication: Hypothyroidism
     Dates: start: 2010
  21. LIOTHYRONINE SODIUM [Concomitant]
     Active Substance: LIOTHYRONINE SODIUM
     Indication: Hypothyroidism
     Dates: start: 2010
  22. ROSUVASTATIN [Concomitant]
     Active Substance: ROSUVASTATIN
     Indication: Blood cholesterol increased
     Dates: start: 2019
  23. DOXYCYCLINE [Concomitant]
     Active Substance: DOXYCYCLINE
     Indication: Inflammation
     Dates: start: 2020
  24. CLOBETASOL PROPIONATE/CALCIPOTRIOL [Concomitant]
     Indication: Hypersensitivity
     Dates: start: 2000, end: 2019
  25. AMOXICILLIN [Concomitant]
     Active Substance: AMOXICILLIN
     Indication: Infection
     Dates: start: 2020
  26. AZITHROMYCIN [Concomitant]
     Active Substance: AZITHROMYCIN
     Indication: Infection
     Dates: start: 2020
  27. NYSTATIN [Concomitant]
     Active Substance: NYSTATIN
     Indication: Fungal skin infection
     Dates: start: 2000, end: 2017
  28. CEPHALEXIN [Concomitant]
     Active Substance: CEPHALEXIN
     Indication: Infection
     Dates: start: 2017, end: 2020
  29. SULFAMETH/TRIMETHROPRIM [Concomitant]
     Indication: Infection
     Dates: start: 2020
  30. TRAMADOL [Concomitant]
     Active Substance: TRAMADOL
     Indication: Hypertension
     Dates: start: 2019
  31. ERYTHROMYCIN [Concomitant]
     Active Substance: ERYTHROMYCIN
     Indication: Infection
     Dates: start: 2020
  32. LEVOFLOXACIN [Concomitant]
     Active Substance: LEVOFLOXACIN
     Indication: Infection
     Dates: start: 2020
  33. LISINOPRIL [Concomitant]
     Active Substance: LISINOPRIL
     Indication: Hypertension
     Dates: start: 2019
  34. VALSARTAN [Concomitant]
     Active Substance: VALSARTAN
     Indication: Hypertension
     Dates: start: 2019
  35. PROLIA [Concomitant]
     Active Substance: DENOSUMAB
     Indication: Osteopenia
  36. ACETAMINOPHEN [Concomitant]
     Active Substance: ACETAMINOPHEN
     Indication: Pain management
  37. ALAVERT ALLERGY [Concomitant]
     Active Substance: LORATADINE
     Indication: Hypersensitivity
  38. B COMPLEX VITAMIN [Concomitant]
  39. BIOTIN [Concomitant]
     Active Substance: BIOTIN
     Indication: Alopecia
  40. BIOTIN [Concomitant]
     Active Substance: BIOTIN
     Indication: Nail disorder
  41. CALCIUM [Concomitant]
     Active Substance: CALCIUM
  42. FISH OIL [Concomitant]
     Active Substance: FISH OIL
  43. GLUCOSAMINE [Concomitant]
     Active Substance: GLUCOSAMINE
  44. IBUPROFEN [Concomitant]
     Active Substance: IBUPROFEN
     Indication: Pain management
  45. MAGNESIUM [Concomitant]
     Active Substance: MAGNESIUM
  46. VITAMINS [Concomitant]
     Active Substance: VITAMINS
  47. MINERALS\VITAMINS [Concomitant]
     Active Substance: MINERALS\VITAMINS
  48. MINERALS\VITAMINS [Concomitant]
     Active Substance: MINERALS\VITAMINS
  49. MINERALS\VITAMINS [Concomitant]
     Active Substance: MINERALS\VITAMINS
  50. MINERALS\VITAMINS [Concomitant]
     Active Substance: MINERALS\VITAMINS
     Indication: Bone metabolism disorder
  51. VITAMIN A [Concomitant]
     Active Substance: VITAMIN A
  52. VITAMIN C [Concomitant]
     Active Substance: ASCORBIC ACID
     Indication: Immune system disorder
  53. VITAMIN D [Concomitant]
     Active Substance: VITAMIN D NOS
  54. SYMBICORT [Concomitant]
     Active Substance: BUDESONIDE\FORMOTEROL FUMARATE DIHYDRATE
  55. ESTRADIOL [Concomitant]
     Active Substance: ESTRADIOL
  56. AZELASTIN [Concomitant]
  57. PREDNISONE [Concomitant]
     Active Substance: PREDNISONE
  58. CYTOMEL [Concomitant]
     Active Substance: LIOTHYRONINE SODIUM
  59. MELATONIN [Concomitant]
     Active Substance: MELATONIN

REACTIONS (4)
  - Chronic kidney disease [Not Recovered/Not Resolved]
  - Renal failure [Not Recovered/Not Resolved]
  - Acute kidney injury [Not Recovered/Not Resolved]
  - Hyperparathyroidism secondary [Unknown]

NARRATIVE: CASE EVENT DATE: 20120101
